FAERS Safety Report 6370655-3 (Version None)
Quarter: 2009Q3

REPORT INFORMATION
  Report Type: 
  Country: None (occurrence: None)
  Receive Date: 20090923
  Receipt Date: 20090917
  Transmission Date: 20100115
  Serious: Yes (Hospitalization, Other)
  Sender: FDA-Public Use
  Company Number: US-ABBOTT-09P-163-0597898-00

PATIENT
  Sex: Female

DRUGS (1)
  1. LUPRON DEPOT [Suspect]
     Indication: ENDOMETRIOSIS
     Dates: start: 20081001, end: 20081229

REACTIONS (7)
  - FLANK PAIN [None]
  - HYDRONEPHROSIS [None]
  - NAUSEA [None]
  - PLACENTA PRAEVIA [None]
  - PREMATURE LABOUR [None]
  - URETERIC STENOSIS [None]
  - URINARY TRACT INFECTION [None]
